FAERS Safety Report 26126268 (Version 2)
Quarter: 2025Q4

REPORT INFORMATION
  Report Type: Spontaneous
  Country: JP (occurrence: JP)
  Receive Date: 20251205
  Receipt Date: 20251211
  Transmission Date: 20260118
  Serious: Yes (Other)
  Sender: MERCK SHARP & DOHME LLC
  Company Number: JP-BAYER-2025A155529

PATIENT
  Age: 73 Year
  Sex: Male

DRUGS (6)
  1. VERQUVO [Suspect]
     Active Substance: VERICIGUAT
     Indication: Ejection fraction decreased
     Dosage: 2.5MG
     Route: 048
     Dates: start: 202509
  2. VERQUVO [Suspect]
     Active Substance: VERICIGUAT
     Indication: Ejection fraction decreased
     Dosage: 5 MG
     Route: 048
  3. VERQUVO [Suspect]
     Active Substance: VERICIGUAT
     Indication: Ejection fraction decreased
     Dosage: 10 MG
     Route: 048
  4. AMIODARONE HYDROCHLORIDE [Concomitant]
     Active Substance: AMIODARONE HYDROCHLORIDE
     Route: 048
  5. EPLERENONE [Suspect]
     Active Substance: EPLERENONE
     Route: 048
  6. CARVEDILOL [Suspect]
     Active Substance: CARVEDILOL
     Route: 048

REACTIONS (3)
  - Arrhythmia [Unknown]
  - Blood pressure decreased [Unknown]
  - Fatigue [Unknown]

NARRATIVE: CASE EVENT DATE: 20251101
